FAERS Safety Report 6665104-1 (Version None)
Quarter: 2010Q2

REPORT INFORMATION
  Report Type: 
  Country: None (occurrence: None)
  Receive Date: 20100402
  Receipt Date: 20100318
  Transmission Date: 20101027
  Serious: No
  Sender: FDA-Public Use
  Company Number: 2009BI037736

PATIENT
  Age: 38 Year
  Sex: Female

DRUGS (1)
  1. TYSABRI [Suspect]
     Indication: MULTIPLE SCLEROSIS
     Route: 042
     Dates: start: 20090923

REACTIONS (4)
  - INSOMNIA [None]
  - MULTIPLE SCLEROSIS RELAPSE [None]
  - TRAUMATIC LUMBAR PUNCTURE [None]
  - URINARY INCONTINENCE [None]
